FAERS Safety Report 17996613 (Version 1)
Quarter: 2020Q3

REPORT INFORMATION
  Report Type: Spontaneous
  Country: US (occurrence: US)
  Receive Date: 20200708
  Receipt Date: 20200708
  Transmission Date: 20201103
  Serious: Yes (Other)
  Sender: FDA-Public Use
  Company Number: US-INDIVIOR EUROPE LIMITED-INDV-125461-2020

PATIENT
  Age: 29 Year
  Sex: Female

DRUGS (3)
  1. VALIUM [Concomitant]
     Active Substance: DIAZEPAM
     Indication: PANIC ATTACK
  2. VALIUM [Concomitant]
     Active Substance: DIAZEPAM
     Indication: ANXIETY
     Dosage: UNK, (THREE TIMES A DAY)
     Route: 065
  3. SUBOXONE [Suspect]
     Active Substance: BUPRENORPHINE HYDROCHLORIDE\NALOXONE HYDROCHLORIDE
     Indication: PRODUCT USED FOR UNKNOWN INDICATION
     Dosage: UNK
     Route: 065
     Dates: end: 202006

REACTIONS (8)
  - Seizure [Unknown]
  - Fall [Recovered/Resolved]
  - Feeling of body temperature change [Unknown]
  - Diarrhoea [Unknown]
  - Drug withdrawal syndrome [Not Recovered/Not Resolved]
  - Illness [Unknown]
  - Decreased appetite [Unknown]
  - Hyperhidrosis [Unknown]
